FAERS Safety Report 6062556-5 (Version None)
Quarter: 2009Q1

REPORT INFORMATION
  Report Type: 
  Country: None (occurrence: None)
  Receive Date: 20090202
  Receipt Date: 20090202
  Transmission Date: 20090719
  Serious: Yes (Other)
  Sender: FDA-Public Use
  Company Number: None

PATIENT
  Sex: Female
  Weight: 54.4316 kg

DRUGS (2)
  1. HYDROCODONE BITARTRATE + ACETAMINOPHEN [Suspect]
     Indication: PAIN
     Dosage: 1/2- 1 TAB 3 TIMES A DAY PO
     Route: 048
     Dates: start: 20050101, end: 20090201
  2. OXYCONTIN [Suspect]
     Indication: PAIN
     Dosage: 1 TAB 2 TIMES A DAY PO
     Route: 048
     Dates: start: 20081001, end: 20090201

REACTIONS (3)
  - POOR QUALITY DRUG ADMINISTERED [None]
  - PRODUCT QUALITY ISSUE [None]
  - QUALITY OF LIFE DECREASED [None]
